FAERS Safety Report 12162489 (Version 4)
Quarter: 2017Q1

REPORT INFORMATION
  Report Type: Spontaneous
  Country: US (occurrence: US)
  Receive Date: 20160309
  Receipt Date: 20170118
  Transmission Date: 20170428
  Serious: No
  Sender: FDA-Public Use
  Company Number: US-PFIZER INC-2016088374

PATIENT
  Age: 59 Year
  Sex: Female

DRUGS (9)
  1. CELEBREX [Suspect]
     Active Substance: CELECOXIB
     Indication: ARTHRALGIA
  2. CELEBREX [Suspect]
     Active Substance: CELECOXIB
     Indication: TORTICOLLIS
  3. LYRICA [Suspect]
     Active Substance: PREGABALIN
     Indication: TORTICOLLIS
     Dosage: 150 MG, 2X/DAY
     Route: 048
  4. LYRICA [Suspect]
     Active Substance: PREGABALIN
     Indication: TORTICOLLIS
  5. CELEBREX [Suspect]
     Active Substance: CELECOXIB
     Indication: BONE SWELLING
     Dosage: 200 MG, 1X/DAY
     Route: 048
  6. CELEBREX [Suspect]
     Active Substance: CELECOXIB
     Indication: JOINT SWELLING
  7. CELEBREX [Suspect]
     Active Substance: CELECOXIB
     Indication: BONE PAIN
  8. CELEBREX [Suspect]
     Active Substance: CELECOXIB
     Indication: TORTICOLLIS
  9. CELEBREX [Suspect]
     Active Substance: CELECOXIB
     Indication: MOVEMENT DISORDER

REACTIONS (3)
  - Musculoskeletal pain [Unknown]
  - Influenza like illness [Unknown]
  - Product use issue [Unknown]
